FAERS Safety Report 8538983-0 (Version None)
Quarter: 2012Q3

REPORT INFORMATION
  Report Type: 
  Country: None (occurrence: None)
  Receive Date: 20120726
  Receipt Date: 20120720
  Transmission Date: 20120928
  Serious: Yes (Death)
  Sender: FDA-Public Use
  Company Number: PHEH2012US008869

PATIENT
  Sex: Female

DRUGS (2)
  1. GLEEVEC [Suspect]
     Indication: LYMPHOCYTIC LEUKAEMIA
     Dosage: 400 MG, DAILY
     Route: 048
     Dates: start: 20120120, end: 20120414
  2. NEUPOGEN [Concomitant]

REACTIONS (5)
  - PNEUMONIA ASPIRATION [None]
  - ACUTE LYMPHOCYTIC LEUKAEMIA [None]
  - DYSPNOEA [None]
  - VOMITING [None]
  - RESPIRATORY FAILURE [None]
